FAERS Safety Report 6144222-0 (Version None)
Quarter: 2009Q2

REPORT INFORMATION
  Report Type: 
  Country: None (occurrence: None)
  Receive Date: 20090406
  Receipt Date: 20090406
  Transmission Date: 20091009
  Serious: Yes (Hospitalization)
  Sender: FDA-Public Use
  Company Number: PHHO2005PL08704

PATIENT
  Sex: Female
  Weight: 95 kg

DRUGS (5)
  1. CGS 20267 T30748+ [Suspect]
     Indication: BREAST CANCER
     Dosage: 2.5 MG, QD
     Route: 048
  2. TAMOXIFEN CITRATE [Suspect]
     Dosage: 20 MG, QD
     Dates: start: 20020828
  3. ENALAPRIL [Concomitant]
     Indication: HYPERTENSION
  4. INDOBUFEN [Concomitant]
     Indication: HYPERCHOLESTEROLAEMIA
  5. METOPROLOL [Concomitant]
     Indication: HYPERTENSION

REACTIONS (3)
  - METRORRHAGIA [None]
  - UTERINE CERVICAL EROSION [None]
  - UTERINE OPERATION [None]
